FAERS Safety Report 12617281 (Version 1)
Quarter: 2016Q3

REPORT INFORMATION
  Report Type: Spontaneous
  Country: BR (occurrence: BR)
  Receive Date: 20160803
  Receipt Date: 20160803
  Transmission Date: 20161109
  Serious: Yes (Hospitalization, Other)
  Sender: FDA-Public Use
  Company Number: BR-009507513-1608BRA000717

PATIENT
  Age: 75 Year
  Sex: Female
  Weight: 84 kg

DRUGS (7)
  1. GLIFAGE [Concomitant]
     Active Substance: METFORMIN HYDROCHLORIDE
     Indication: DIABETES MELLITUS
     Dosage: 500 MG, QD
     Route: 048
  2. LOSARTAN POTASSIUM. [Suspect]
     Active Substance: LOSARTAN POTASSIUM
     Indication: HYPERTENSION
     Dosage: 50 MG TABLETS EVERY 12 HOURS
     Route: 048
     Dates: start: 2011
  3. DESALEX [Suspect]
     Active Substance: DESLORATADINE
     Dosage: UNK
     Route: 048
  4. PNEUMOCOCCAL VACCINE (UNSPECIFIED) [Concomitant]
     Indication: PROPHYLAXIS
     Dosage: UNK
     Dates: start: 201306
  5. PNEUMOCOCCAL VACCINE, POLYVALENT (23-VALENT) [Suspect]
     Active Substance: PNEUMOCOCCAL VACCINE, POLYVALENT 23
     Dates: start: 201306, end: 201306
  6. DIAMICRON [Concomitant]
     Active Substance: GLICLAZIDE
     Indication: DIABETES MELLITUS
     Dosage: ONE TABLET DAILY
     Route: 048
  7. HIGROTON [Concomitant]
     Active Substance: CHLORTHALIDONE
     Indication: HYPERTENSION
     Dosage: 12.5 MG, QD
     Route: 048
     Dates: start: 2011

REACTIONS (4)
  - Skin cancer [Unknown]
  - Thrombosis [Unknown]
  - Cough [Recovered/Resolved]
  - Headache [Unknown]

NARRATIVE: CASE EVENT DATE: 201307
